FAERS Safety Report 4875286-X (Version None)
Quarter: 2006Q1

REPORT INFORMATION
  Report Type: 
  Country: None (occurrence: None)
  Receive Date: 20060109
  Receipt Date: 20060102
  Transmission Date: 20060701
  Serious: Yes (Other)
  Sender: FDA-Public Use
  Company Number: PHBS2006FR00470

PATIENT
  Age: 40 Year
  Sex: Female

DRUGS (4)
  1. VALSARTAN [Suspect]
     Indication: HYPERTENSION
     Dosage: 8 MG/DAY
  2. HYDROCHLOROTHIAZIDE [Suspect]
     Indication: HYPERTENSION
     Dosage: 0.15 MG/DAY
  3. LECARDINIPINE [Suspect]
     Indication: HYPERTENSION
     Dosage: 20 MG/DAY
  4. CLONIDINE [Suspect]
     Indication: HYPERTENSION
     Dosage: 0.15 MG, UNK

REACTIONS (3)
  - DRUG EXPOSURE DURING PREGNANCY [None]
  - OLIGOHYDRAMNIOS [None]
  - PREMATURE RUPTURE OF MEMBRANES [None]
